FAERS Safety Report 13496202 (Version 3)
Quarter: 2018Q1

REPORT INFORMATION
  Report Type: Spontaneous
  Country: AR (occurrence: AR)
  Receive Date: 20170428
  Receipt Date: 20180124
  Transmission Date: 20180508
  Serious: Yes (Death, Other)
  Sender: FDA-Public Use
  Company Number: AR-PFIZER INC-2017182504

PATIENT
  Age: 52 Year
  Sex: Female

DRUGS (2)
  1. CALCIUM [Concomitant]
     Active Substance: CALCIUM
     Dosage: UNK
  2. IBRANCE [Suspect]
     Active Substance: PALBOCICLIB
     Indication: BREAST CANCER METASTATIC
     Dosage: 100 MG, CYCLIC (SCHEME 3/1)
     Dates: start: 20160720, end: 20170208

REACTIONS (6)
  - Bone fissure [Unknown]
  - Neoplasm progression [Fatal]
  - Hypokinesia [Unknown]
  - Bone disorder [Unknown]
  - Pain [Recovering/Resolving]
  - Rib fracture [Unknown]

NARRATIVE: CASE EVENT DATE: 201610
